FAERS Safety Report 20611676 (Version 3)
Quarter: 2022Q2

REPORT INFORMATION
  Report Type: Spontaneous
  Country: US (occurrence: US)
  Receive Date: 20220318
  Receipt Date: 20220628
  Transmission Date: 20220721
  Serious: Yes (Hospitalization, Other)
  Sender: FDA-Public Use
  Company Number: US-ALXN-A202203221

PATIENT
  Age: 36 Year
  Sex: Female

DRUGS (1)
  1. SOLIRIS [Suspect]
     Active Substance: ECULIZUMAB
     Indication: Myasthenia gravis
     Dosage: 1200 MG, Q2W
     Route: 042
     Dates: start: 20210923, end: 20220306

REACTIONS (10)
  - Meningococcal infection [Unknown]
  - Feeling cold [Unknown]
  - Rash [Unknown]
  - Rash vesicular [Unknown]
  - Rash macular [Unknown]
  - Malaise [Unknown]
  - Feeling hot [Unknown]
  - Pain in extremity [Unknown]
  - Hypersensitivity [Unknown]
  - Vomiting [Unknown]

NARRATIVE: CASE EVENT DATE: 20220306
